FAERS Safety Report 20980049 (Version 1)
Quarter: 2022Q2

REPORT INFORMATION
  Report Type: Spontaneous
  Country: US (occurrence: US)
  Receive Date: 20220620
  Receipt Date: 20220620
  Transmission Date: 20220721
  Serious: Yes (Other)
  Sender: FDA-Public Use
  Company Number: US-STRIDES ARCOLAB LIMITED-2022SP005228

PATIENT
  Age: 58 Year
  Sex: Female

DRUGS (8)
  1. TRIAMCINOLONE ACETONIDE [Suspect]
     Active Substance: TRIAMCINOLONE ACETONIDE
     Indication: Pustular psoriasis
     Dosage: UNK (OINTMENT)
     Route: 061
  2. CLOBETASOL [Suspect]
     Active Substance: CLOBETASOL
     Indication: Pustular psoriasis
     Dosage: UNK
     Route: 061
  3. HYDROCORTISONE [Suspect]
     Active Substance: HYDROCORTISONE
     Indication: Pustular psoriasis
     Dosage: UNK
     Route: 061
  4. NIVOLUMAB [Concomitant]
     Active Substance: NIVOLUMAB
     Indication: Oesophageal adenocarcinoma stage IV
     Dosage: 240 MILLIGRAM, CYCLICAL
     Route: 065
  5. LEUCOVORIN [Concomitant]
     Active Substance: LEUCOVORIN
     Indication: Oesophageal adenocarcinoma stage IV
     Dosage: UNK AS PART OF FOLFOX REGIMEN
     Route: 065
  6. FLUOROURACIL [Concomitant]
     Active Substance: FLUOROURACIL
     Indication: Oesophageal adenocarcinoma stage IV
     Dosage: UNK AS PART OF FOLFOX REGIMEN
     Route: 065
  7. OXALIPLATIN [Concomitant]
     Active Substance: OXALIPLATIN
     Indication: Oesophageal adenocarcinoma stage IV
     Dosage: UNK AS PART OF FOLFOX REGIMEN
     Route: 065
  8. ZINC SULFATE [Concomitant]
     Active Substance: ZINC SULFATE
     Indication: Supplementation therapy
     Dosage: UNK
     Route: 065

REACTIONS (1)
  - Drug ineffective for unapproved indication [Unknown]
